FAERS Safety Report 22373516 (Version 1)
Quarter: 2023Q2

REPORT INFORMATION
  Report Type: Spontaneous
  Country: BR (occurrence: BR)
  Receive Date: 20230526
  Receipt Date: 20230526
  Transmission Date: 20230722
  Serious: Yes (Hospitalization)
  Sender: FDA-Public Use
  Company Number: BR-UCBSA-2023026735

PATIENT
  Age: 46 Year
  Sex: Male

DRUGS (1)
  1. KEPPRA XR [Suspect]
     Active Substance: LEVETIRACETAM
     Indication: Seizure cluster
     Dosage: 1000 MILLIGRAM, 2X/DAY (BID), PILLS IN THE MORNING, 2 PILLS IN THE EVENING
     Route: 048
     Dates: start: 20221201

REACTIONS (2)
  - Renal disorder [Unknown]
  - Off label use [Unknown]

NARRATIVE: CASE EVENT DATE: 20221201
